FAERS Safety Report 8449651-8 (Version None)
Quarter: 2012Q2

REPORT INFORMATION
  Report Type: 
  Country: None (occurrence: None)
  Receive Date: 20120620
  Receipt Date: 20120611
  Transmission Date: 20120825
  Serious: Yes (Life-Threatening)
  Sender: FDA-Public Use
  Company Number: JP-BRISTOL-MYERS SQUIBB COMPANY-15950611

PATIENT
  Age: 76 Year
  Sex: Male
  Weight: 50 kg

DRUGS (18)
  1. KETALAR [Concomitant]
     Dosage: INJECTION
  2. BETAMETHASONE [Concomitant]
     Dosage: SYRUP
     Dates: start: 20110524, end: 20110807
  3. ABILIFY [Suspect]
     Indication: DELIRIUM
     Route: 048
     Dates: start: 20110719, end: 20110726
  4. ZOSYN [Concomitant]
     Route: 041
     Dates: start: 20110703, end: 20110726
  5. MAINTENANCE MEDIUM [Concomitant]
     Dosage: INJECTION SOLDEM
  6. MUCODYNE [Concomitant]
     Dosage: SYRUP
     Dates: start: 20110607, end: 20110805
  7. LAC-B [Concomitant]
     Dosage: ORAL POWDER
     Route: 048
  8. LACTEC [Concomitant]
     Dosage: INJECTION
  9. ALPRAZOLAM [Concomitant]
     Dosage: TABLET
     Dates: start: 20110716, end: 20110804
  10. VITAMEDIN [Concomitant]
  11. KENTAN [Concomitant]
     Dosage: GRANULES
     Dates: start: 20110617, end: 20110804
  12. MILMAG [Concomitant]
  13. THYROID TAB [Concomitant]
     Dosage: THYRADIN,TAB
     Dates: start: 20110622, end: 20110802
  14. MORPHINE [Concomitant]
  15. ALFACALCIDOL [Concomitant]
     Dosage: CALFINA TAB
     Dates: start: 20110607, end: 20110805
  16. LANSOPRAZOLE [Concomitant]
  17. METILON [Concomitant]
  18. MIDAZOLAM [Concomitant]
     Dates: start: 20110627, end: 20110807

REACTIONS (2)
  - PANCYTOPENIA [None]
  - GRANULOCYTOPENIA [None]
